FAERS Safety Report 8232440-7 (Version None)
Quarter: 2012Q1

REPORT INFORMATION
  Report Type: 
  Country: None (occurrence: None)
  Receive Date: 20120323
  Receipt Date: 20120316
  Transmission Date: 20120608
  Serious: Yes (Hospitalization, Other)
  Sender: FDA-Public Use
  Company Number: US-ABBOTT-12P-163-0909100-00

PATIENT
  Sex: Female
  Weight: 51.756 kg

DRUGS (12)
  1. WELLBUTRIN [Concomitant]
     Indication: ANXIETY
  2. 20 DIFFERENT MEDICATIONS [Concomitant]
     Indication: PRODUCT USED FOR UNKNOWN INDICATION
  3. ENTOCORT EC [Concomitant]
     Indication: CROHN'S DISEASE
  4. PENTASA [Concomitant]
     Indication: CROHN'S DISEASE
  5. PREDNISONE [Suspect]
     Indication: CROHN'S DISEASE
  6. XIFAXAN [Concomitant]
     Indication: CROHN'S DISEASE
  7. RECLAST [Concomitant]
     Indication: PRODUCT USED FOR UNKNOWN INDICATION
  8. PREDNISONE [Suspect]
     Dosage: STRESS DOSE
  9. UNKNOWN MEDICATION [Concomitant]
     Indication: HYPERSENSITIVITY
  10. HUMIRA [Suspect]
     Indication: CROHN'S DISEASE
     Route: 058
     Dates: start: 20070101, end: 20111113
  11. HUMIRA [Suspect]
     Indication: PSORIASIS
  12. PROPRANOLOL [Concomitant]
     Indication: VARICES OESOPHAGEAL

REACTIONS (12)
  - PNEUMONIA PRIMARY ATYPICAL [None]
  - OPPORTUNISTIC INFECTION [None]
  - CROHN'S DISEASE [None]
  - SEPSIS SYNDROME [None]
  - MALAISE [None]
  - IMMUNODEFICIENCY [None]
  - OXYGEN SATURATION DECREASED [None]
  - RESPIRATORY MONILIASIS [None]
  - SINUS CONGESTION [None]
  - RESPIRATORY FAILURE [None]
  - FATIGUE [None]
  - DYSPNOEA [None]
